FAERS Safety Report 12844919 (Version 3)
Quarter: 2016Q4

REPORT INFORMATION
  Report Type: Spontaneous
  Country: CH (occurrence: CH)
  Receive Date: 20161013
  Receipt Date: 20161030
  Transmission Date: 20170207
  Serious: Yes (Hospitalization)
  Sender: FDA-Public Use
  Company Number: CH-ASTRAZENECA-2016SF06391

PATIENT
  Age: 68 Year
  Sex: Female
  Weight: 60 kg

DRUGS (3)
  1. ASPIRIN CARDIO [Concomitant]
     Active Substance: ASPIRIN
     Route: 048
  2. ATACAND PLUS [Suspect]
     Active Substance: CANDESARTAN CILEXETIL\HYDROCHLOROTHIAZIDE
     Dosage: 32/12.5 MG, DAILY
     Route: 048
     Dates: end: 201608
  3. ATORVASTATIN PFIZER [Concomitant]
     Active Substance: ATORVASTATIN
     Route: 048

REACTIONS (6)
  - Hypokalaemia [Unknown]
  - Constipation [Unknown]
  - Hypomagnesaemia [Unknown]
  - Blood osmolarity abnormal [Unknown]
  - Inappropriate antidiuretic hormone secretion [Recovering/Resolving]
  - Hyponatraemia [Unknown]

NARRATIVE: CASE EVENT DATE: 20160804
